FAERS Safety Report 12824014 (Version 2)
Quarter: 2016Q4

REPORT INFORMATION
  Report Type: Spontaneous
  Country: ID (occurrence: ID)
  Receive Date: 20161007
  Receipt Date: 20161012
  Transmission Date: 20170207
  Serious: Yes (Hospitalization)
  Sender: FDA-Public Use
  Company Number: ID-EISAI MEDICAL RESEARCH-EC-2016-020952

PATIENT
  Age: 55 Year
  Sex: Female

DRUGS (1)
  1. HALAVEN [Suspect]
     Active Substance: ERIBULIN MESYLATE
     Indication: BREAST CANCER METASTATIC
     Dosage: +/- 2 MG
     Route: 041
     Dates: start: 20160810, end: 20160810

REACTIONS (2)
  - Febrile neutropenia [Recovered/Resolved]
  - Thrombocytopenia [Recovering/Resolving]

NARRATIVE: CASE EVENT DATE: 20160815
